FAERS Safety Report 8598644-9 (Version None)
Quarter: 2012Q3

REPORT INFORMATION
  Report Type: 
  Country: None (occurrence: None)
  Receive Date: 20120816
  Receipt Date: 20120806
  Transmission Date: 20120928
  Serious: No
  Sender: FDA-Public Use
  Company Number: US-BAYER-2012-081465

PATIENT
  Sex: Female

DRUGS (2)
  1. ALEVE (CAPLET) [Suspect]
     Indication: DYSMENORRHOEA
     Route: 048
  2. MOTRIN [Concomitant]

REACTIONS (6)
  - PAIN [None]
  - DYSMENORRHOEA [None]
  - BACK PAIN [None]
  - HUNGER [None]
  - SWELLING [None]
  - POLLAKIURIA [None]
